FAERS Safety Report 9454539 (Version 2)
Quarter: 2013Q3

REPORT INFORMATION
  Report Type: Spontaneous
  Country: ES (occurrence: ES)
  Receive Date: 20130812
  Receipt Date: 20130815
  Transmission Date: 20140515
  Serious: Yes (Hospitalization)
  Sender: FDA-Public Use
  Company Number: ES-GLAXOSMITHKLINE-B0914608A

PATIENT
  Age: 8 Year
  Sex: Female

DRUGS (4)
  1. BACTROBAN [Suspect]
     Indication: ARTHROPOD BITE
     Route: 061
     Dates: start: 20130804, end: 20130804
  2. URBASON [Concomitant]
     Indication: ARTHROPOD BITE
     Dates: start: 20130804
  3. FLUOCINOLONE ACETONIDE CREAM [Concomitant]
     Indication: ARTHROPOD BITE
     Dates: start: 20130804
  4. BETAMETHASONE VALERATE [Concomitant]
     Dates: start: 20130804

REACTIONS (5)
  - Pruritus [Recovered/Resolved]
  - Pain of skin [Recovered/Resolved]
  - Erythema [Recovered/Resolved]
  - Skin plaque [Recovered/Resolved]
  - Dry skin [Recovered/Resolved]
